FAERS Safety Report 6438395-X (Version None)
Quarter: 2009Q4

REPORT INFORMATION
  Report Type: 
  Country: None (occurrence: None)
  Receive Date: 20091109
  Receipt Date: 20091103
  Transmission Date: 20100525
  Serious: Yes (Death, Hospitalization, Other)
  Sender: FDA-Public Use
  Company Number: ENTC2009-0113

PATIENT
  Age: 84 Year
  Sex: Male

DRUGS (4)
  1. STALEVO 100 [Suspect]
     Indication: PARKINSON'S DISEASE
     Dosage: 100/25/200  ORAL;  50/12.5/200;  FOUR YEARS AGO
     Route: 048
  2. CONCOR [Suspect]
     Indication: BLOOD PRESSURE INCREASED
     Dosage: 5 MG (5 MG, 1  IN 1 D)  ORAL
     Route: 048
  3. MEMANTINE HCL [Concomitant]
  4. HYZAAR [Concomitant]

REACTIONS (7)
  - CONDITION AGGRAVATED [None]
  - DIALYSIS [None]
  - DISEASE COMPLICATION [None]
  - DYSPHAGIA [None]
  - MUSCULOSKELETAL STIFFNESS [None]
  - PARKINSON'S DISEASE [None]
  - RENAL FAILURE ACUTE [None]
